FAERS Safety Report 15267961 (Version 1)
Quarter: 2018Q3

REPORT INFORMATION
  Report Type: Spontaneous
  Country: US (occurrence: US)
  Receive Date: 20180725
  Receipt Date: 20180725
  Transmission Date: 20181010
  Serious: Yes (Life-Threatening)
  Sender: FDA-Public Use
  Company Number: None

PATIENT
  Age: 79 Year
  Sex: Male

DRUGS (1)
  1. DIPRIVAN [Suspect]
     Active Substance: PROPOFOL
     Indication: ANAESTHESIA
     Route: 040
     Dates: start: 20180725, end: 20180725

REACTIONS (3)
  - Product quality issue [None]
  - Speech disorder [None]
  - Cough [None]

NARRATIVE: CASE EVENT DATE: 20180725
